FAERS Safety Report 6866897-0 (Version None)
Quarter: 2010Q3

REPORT INFORMATION
  Report Type: 
  Country: None (occurrence: None)
  Receive Date: 20100721
  Receipt Date: 20100721
  Transmission Date: 20110219
  Serious: No
  Sender: FDA-Public Use
  Company Number: None

PATIENT
  Sex: Female
  Weight: 99.7913 kg

DRUGS (2)
  1. ACETAMINOPHEN W/ CODEINE #4, PAPA-DEINE #4 [Suspect]
     Dosage: 1 X 3 DAILY
  2. TYLENOL W/ CODEINE NO. 4 [Suspect]
     Dosage: 1 X 3 DAILY

REACTIONS (2)
  - DRUG EFFECT DECREASED [None]
  - PRODUCT SUBSTITUTION ISSUE [None]
